FAERS Safety Report 9961236 (Version 1)
Quarter: 2014Q1

REPORT INFORMATION
  Report Type: Spontaneous
  Country: US (occurrence: None)
  Receive Date: 20140127
  Receipt Date: 20140127
  Transmission Date: 20141002
  Serious: Yes (Other)
  Sender: FDA-Public Use
  Company Number: 1243338

PATIENT
  Age: 3 Year
  Sex: Female

DRUGS (1)
  1. RITUXIMAB [Suspect]
     Indication: POST TRANSPLANT LYMPHOPROLIFERATIVE DISORDER
     Dosage: 4 DOSES, (1 IN 1 WK), UNKNOWN

REACTIONS (1)
  - Large intestine perforation [None]
